FAERS Safety Report 9316575 (Version 1)
Quarter: 2013Q2

REPORT INFORMATION
  Report Type: Spontaneous
  Country: US (occurrence: US)
  Receive Date: 20130530
  Receipt Date: 20130530
  Transmission Date: 20140414
  Serious: Yes (Hospitalization)
  Sender: FDA-Public Use
  Company Number: US-ROCHE-1230254

PATIENT
  Age: 61 Year
  Sex: Male

DRUGS (3)
  1. PEGASYS [Suspect]
     Indication: HEPATITIS
     Route: 065
  2. RIBAVIRIN [Suspect]
     Indication: HEPATITIS
     Route: 065
  3. INCIVEK [Concomitant]
     Indication: HEPATITIS

REACTIONS (3)
  - Asthenia [Unknown]
  - Hypokalaemia [Unknown]
  - Myositis [Unknown]
